FAERS Safety Report 6131450-3 (Version None)
Quarter: 2009Q1

REPORT INFORMATION
  Report Type: 
  Country: None (occurrence: None)
  Receive Date: 20090325
  Receipt Date: 20080805
  Transmission Date: 20090719
  Serious: Yes (Hospitalization)
  Sender: FDA-Public Use
  Company Number: US-BRISTOL-MYERS SQUIBB COMPANY-14266266

PATIENT
  Age: 50 Year
  Sex: Female

DRUGS (1)
  1. ERBITUX [Suspect]
     Indication: COLORECTAL CANCER METASTATIC
     Dosage: LOADING DOSE/ONLY DOSE FOR 2 MINUTES DURATION
     Route: 042
     Dates: start: 20080710, end: 20080710

REACTIONS (4)
  - AGGRESSION [None]
  - CHEST PAIN [None]
  - FLUSHING [None]
  - LOSS OF CONSCIOUSNESS [None]
